FAERS Safety Report 6982958-X (Version None)
Quarter: 2010Q3

REPORT INFORMATION
  Report Type: 
  Country: None (occurrence: None)
  Receive Date: 20100914
  Receipt Date: 20100507
  Transmission Date: 20110219
  Serious: No
  Sender: FDA-Public Use
  Company Number: US-PFIZER INC-2010058553

PATIENT
  Sex: Female

DRUGS (1)
  1. LYRICA [Suspect]

REACTIONS (5)
  - BURNING SENSATION [None]
  - DISTURBANCE IN ATTENTION [None]
  - FATIGUE [None]
  - HYPOAESTHESIA [None]
  - PAIN [None]
